FAERS Safety Report 15203514 (Version 1)
Quarter: 2018Q3

REPORT INFORMATION
  Report Type: Spontaneous
  Country: US (occurrence: US)
  Receive Date: 20180726
  Receipt Date: 20180726
  Transmission Date: 20181010
  Serious: No
  Sender: FDA-Public Use
  Company Number: US-AMNEAL PHARMACEUTICALS-2018AMN00261

PATIENT
  Sex: Female

DRUGS (3)
  1. BETAFERON [Concomitant]
     Active Substance: INTERFERON BETA-1B
     Dosage: UNK
  2. VALSARTAN. [Suspect]
     Active Substance: VALSARTAN
     Indication: HYPERTENSION
     Dosage: 80 MG, 1X/DAY
     Dates: start: 20180512, end: 20180512
  3. ARMOUR THYROID [Concomitant]
     Active Substance: THYROID, PORCINE

REACTIONS (2)
  - Blood pressure increased [Recovered/Resolved]
  - Cough [Recovered/Resolved]
